FAERS Safety Report 7561390-4 (Version None)
Quarter: 2011Q2

REPORT INFORMATION
  Report Type: 
  Country: None (occurrence: None)
  Receive Date: 20110621
  Receipt Date: 20100726
  Transmission Date: 20111010
  Serious: No
  Sender: FDA-Public Use
  Company Number: US-ASTRAZENECA-2010SE34722

PATIENT
  Age: 7 Year
  Sex: Male
  Weight: 23.6 kg

DRUGS (4)
  1. PULMICORT FLEXHALER [Suspect]
     Indication: ASTHMA
     Route: 055
     Dates: start: 20100401
  2. NEBULIZER [Concomitant]
  3. DIABETIC MEDICATION [Concomitant]
  4. RESCUE INHALER [Concomitant]

REACTIONS (3)
  - DYSPNOEA [None]
  - ASTHMA [None]
  - DRUG DOSE OMISSION [None]
